FAERS Safety Report 16754069 (Version 6)
Quarter: 2020Q1

REPORT INFORMATION
  Report Type: Spontaneous
  Country: JP (occurrence: JP)
  Receive Date: 20190829
  Receipt Date: 20200303
  Transmission Date: 20200409
  Serious: Yes (Death, Life-Threatening, Disabling, Other)
  Sender: FDA-Public Use
  Company Number: JP-PFIZER INC-2019370351

PATIENT
  Age: 63 Year
  Sex: Male
  Weight: 61 kg

DRUGS (7)
  1. CELESTANA [Concomitant]
     Active Substance: BETAMETHASONE\DEXCHLORPHENIRAMINE MALEATE
     Indication: PRURITUS
     Dosage: 3 DF, EVERY 8 HOURS
     Route: 048
     Dates: start: 20190118, end: 20190123
  2. CELESTANA [Concomitant]
     Active Substance: BETAMETHASONE\DEXCHLORPHENIRAMINE MALEATE
     Dosage: 2 DF, EVERY 12 HOURS
     Route: 048
     Dates: start: 20190125, end: 20190201
  3. POLAPREZINC [Concomitant]
     Active Substance: POLAPREZINC
     Dosage: 75 MG, 2X/DAY
     Route: 048
     Dates: start: 20181228, end: 20191009
  4. LIPITOR [Suspect]
     Active Substance: ATORVASTATIN CALCIUM
     Indication: HYPERCHOLESTEROLAEMIA
     Dosage: 10 MG, 1X/DAY
     Route: 048
     Dates: start: 20190711, end: 20190811
  5. PROMAC [POLAPREZINC] [Concomitant]
     Active Substance: POLAPREZINC
     Indication: CHRONIC GASTRITIS
     Dosage: 150 MG, 2X/DAY
     Route: 048
     Dates: start: 20181005, end: 20181027
  6. CELESTANA [Concomitant]
     Active Substance: BETAMETHASONE\DEXCHLORPHENIRAMINE MALEATE
     Dosage: 3 DF, EVERY 8 HOURS
     Route: 048
     Dates: start: 20190221, end: 20190810
  7. MAGNESIUM OXIDE. [Concomitant]
     Active Substance: MAGNESIUM OXIDE
     Dosage: 500 MG, UNK
     Route: 048
     Dates: start: 20190729, end: 20190731

REACTIONS (10)
  - Platelet count decreased [Not Recovered/Not Resolved]
  - Nephropathy [Unknown]
  - Hepatic necrosis [Unknown]
  - Weight increased [Unknown]
  - Disseminated intravascular coagulation [Fatal]
  - Ileus [Fatal]
  - Hepatic necrosis [Fatal]
  - Transaminases increased [Unknown]
  - Haematemesis [Not Recovered/Not Resolved]
  - Depressed level of consciousness [Not Recovered/Not Resolved]

NARRATIVE: CASE EVENT DATE: 20190713
